FAERS Safety Report 20563883 (Version 1)
Quarter: 2022Q1

REPORT INFORMATION
  Report Type: Spontaneous
  Country: DE (occurrence: DE)
  Receive Date: 20220308
  Receipt Date: 20220308
  Transmission Date: 20220424
  Serious: No
  Sender: FDA-Public Use
  Company Number: DE-ALKEM LABORATORIES LIMITED-DE-ALKEM-2022-00844

PATIENT
  Age: 29 Year
  Sex: Male

DRUGS (4)
  1. CINACALCET [Suspect]
     Active Substance: CINACALCET
     Indication: Blood parathyroid hormone increased
     Dosage: UNK
     Route: 065
  2. CINACALCET [Suspect]
     Active Substance: CINACALCET
     Dosage: 90 MILLIGRAM, QD
     Route: 065
     Dates: start: 20191104
  3. PARSABIV [Suspect]
     Active Substance: ETELCALCETIDE HYDROCHLORIDE
     Indication: Blood parathyroid hormone increased
     Dosage: 15 MG EVERY 1 WEEK
     Route: 065
     Dates: start: 20200309
  4. PARSABIV [Suspect]
     Active Substance: ETELCALCETIDE HYDROCHLORIDE
     Dosage: 30 MG EVERY 1 WEEK
     Route: 065
     Dates: start: 20200525

REACTIONS (1)
  - Blood parathyroid hormone abnormal [Unknown]
